FAERS Safety Report 24706553 (Version 2)
Quarter: 2024Q4

REPORT INFORMATION
  Report Type: Spontaneous
  Country: US (occurrence: US)
  Receive Date: 20241206
  Receipt Date: 20241223
  Transmission Date: 20250115
  Serious: Yes (Other)
  Sender: LUPIN
  Company Number: US-LUPIN EUROPE GMBH-2024-11840

PATIENT

DRUGS (6)
  1. QUETIAPINE FUMARATE [Suspect]
     Active Substance: QUETIAPINE FUMARATE
     Indication: Product used for unknown indication
     Dosage: UNK, QD (HALF TABLET ONCE A DAY AT BEDTIME)
     Route: 065
     Dates: start: 20241101
  2. DULOXETINE [Suspect]
     Active Substance: DULOXETINE
     Indication: Anxiety
     Dosage: UNK
     Route: 065
  3. DULOXETINE [Suspect]
     Active Substance: DULOXETINE
     Indication: Major depression
  4. DULOXETINE [Suspect]
     Active Substance: DULOXETINE
     Indication: Injury
  5. PROPRANOLOL [Concomitant]
     Active Substance: PROPRANOLOL HYDROCHLORIDE
     Indication: Blood pressure abnormal
     Dosage: 10 MG, PRN (AS NEEDED)
     Route: 065
  6. BENZTROPINE [Concomitant]
     Active Substance: BENZTROPINE
     Indication: Dyskinesia
     Dosage: 0.5 MG
     Route: 065

REACTIONS (11)
  - Alcoholism [Not Recovered/Not Resolved]
  - Food craving [Not Recovered/Not Resolved]
  - Hyperphagia [Not Recovered/Not Resolved]
  - Somnolence [Not Recovered/Not Resolved]
  - Abnormal dreams [Not Recovered/Not Resolved]
  - Restless legs syndrome [Not Recovered/Not Resolved]
  - Hyperhidrosis [Not Recovered/Not Resolved]
  - Slow speech [Not Recovered/Not Resolved]
  - Hypertension [Not Recovered/Not Resolved]
  - Micturition disorder [Not Recovered/Not Resolved]
  - Wrong technique in product usage process [Unknown]

NARRATIVE: CASE EVENT DATE: 20240401
